FAERS Safety Report 8084389-0 (Version None)
Quarter: 2012Q1

REPORT INFORMATION
  Report Type: 
  Country: None (occurrence: None)
  Receive Date: 20120128
  Receipt Date: 20110204
  Transmission Date: 20120608
  Serious: No
  Sender: FDA-Public Use
  Company Number: US-ABBOTT-11P-163-0703744-00

PATIENT
  Sex: Male
  Weight: 80.812 kg

DRUGS (3)
  1. HUMIRA [Suspect]
     Dates: start: 20101101
  2. HUMIRA [Suspect]
     Indication: PSORIASIS
     Dates: start: 20090101, end: 20101101
  3. NEXIUM [Concomitant]
     Indication: DYSPEPSIA

REACTIONS (3)
  - DRUG INEFFECTIVE [None]
  - DRUG DOSE OMISSION [None]
  - PSORIASIS [None]
